FAERS Safety Report 7540828-2 (Version None)
Quarter: 2011Q2

REPORT INFORMATION
  Report Type: 
  Country: None (occurrence: None)
  Receive Date: 20110610
  Receipt Date: 20110603
  Transmission Date: 20111010
  Serious: Yes (Hospitalization, Other)
  Sender: FDA-Public Use
  Company Number: US-TEVA-281825USA

PATIENT
  Sex: Male

DRUGS (4)
  1. MEDROXYPROGESTERONE ACETATE [Concomitant]
     Dosage: 10.7143 MILLIGRAM;
     Route: 030
  2. CLOZAPINE [Suspect]
     Indication: SCHIZOPHRENIA
     Dosage: HS
     Route: 048
  3. ZIPRASIDONE HCL [Concomitant]
     Dosage: 40 MILLIGRAM;
     Route: 048
  4. METRONIDAZOLE [Concomitant]
     Dosage: 1500 MILLIGRAM; FOR 10 DAYS
     Route: 048

REACTIONS (7)
  - MILK-ALKALI SYNDROME [None]
  - DEHYDRATION [None]
  - VOMITING [None]
  - PNEUMONIA [None]
  - RENAL FAILURE ACUTE [None]
  - CLOSTRIDIAL INFECTION [None]
  - ANAEMIA [None]
